FAERS Safety Report 7243942-4 (Version None)
Quarter: 2011Q1

REPORT INFORMATION
  Report Type: 
  Country: None (occurrence: None)
  Receive Date: 20110125
  Receipt Date: 20110115
  Transmission Date: 20110831
  Serious: Yes (Other)
  Sender: FDA-Public Use
  Company Number: B0695652A

PATIENT
  Age: 32 Year
  Sex: Male

DRUGS (3)
  1. AUGMENTIN '125' [Suspect]
     Indication: UPPER RESPIRATORY TRACT INFECTION
     Route: 065
  2. NSAID [Concomitant]
     Route: 065
  3. MEDROL [Concomitant]
     Route: 065

REACTIONS (11)
  - HYPOKINESIA [None]
  - HEPATIC ENZYME INCREASED [None]
  - SOFT TISSUE INFLAMMATION [None]
  - TOXICITY TO VARIOUS AGENTS [None]
  - SKIN REACTION [None]
  - JOINT SWELLING [None]
  - OEDEMA PERIPHERAL [None]
  - C-REACTIVE PROTEIN INCREASED [None]
  - ERYTHEMA [None]
  - ARTHRALGIA [None]
  - RED BLOOD CELL SEDIMENTATION RATE INCREASED [None]
